FAERS Safety Report 10203579 (Version 2)
Quarter: 2014Q2

REPORT INFORMATION
  Report Type: Spontaneous
  Country: US (occurrence: US)
  Receive Date: 20140529
  Receipt Date: 20140529
  Transmission Date: 20141212
  Serious: No
  Sender: FDA-Public Use
  Company Number: US-MYLANLABS-2013S1025411

PATIENT
  Age: 63 Year
  Sex: Male

DRUGS (5)
  1. ZOLPIDEM TARTRATE TABLETS [Suspect]
     Indication: SLEEP DISORDER
     Route: 048
     Dates: start: 2011
  2. ZOLPIDEM [Suspect]
     Indication: SLEEP DISORDER
     Route: 048
     Dates: end: 201306
  3. WELLBUTRIN [Concomitant]
     Indication: DEPRESSED MOOD
  4. VITAMINS [Concomitant]
  5. VICODIN [Concomitant]
     Indication: INTERVERTEBRAL DISC PROTRUSION

REACTIONS (2)
  - Migraine [Recovered/Resolved]
  - Dizziness [Recovered/Resolved]
